FAERS Safety Report 6834686-9 (Version None)
Quarter: 2010Q3

REPORT INFORMATION
  Report Type: 
  Country: None (occurrence: None)
  Receive Date: 20100712
  Receipt Date: 20080204
  Transmission Date: 20110219
  Serious: No
  Sender: FDA-Public Use
  Company Number: US-PFIZER INC-2007030862

PATIENT
  Sex: Female
  Weight: 68.181 kg

DRUGS (7)
  1. CHANTIX [Suspect]
     Indication: SMOKING CESSATION THERAPY
     Dates: start: 20070411
  2. LISINOPRIL [Concomitant]
  3. DETROL LA [Concomitant]
  4. ESTROGENS [Concomitant]
  5. SYNTHROID [Concomitant]
  6. CELEBREX [Concomitant]
  7. CELEXA [Concomitant]

REACTIONS (2)
  - INSOMNIA [None]
  - NIGHTMARE [None]
